FAERS Safety Report 10152845 (Version 1)
Quarter: 2014Q2

REPORT INFORMATION
  Report Type: Spontaneous
  Country: US (occurrence: US)
  Receive Date: 20140505
  Receipt Date: 20140505
  Transmission Date: 20141212
  Serious: No
  Sender: FDA-Public Use
  Company Number: US-ASTRAZENECA-2013SE56956

PATIENT
  Age: 38 Year
  Sex: Female

DRUGS (5)
  1. PRILOSEC OTC [Suspect]
     Route: 048
     Dates: start: 20130620, end: 20130717
  2. PETOPERIOL [Concomitant]
     Dosage: UNKNOWN
  3. ASPIRIN [Concomitant]
     Dosage: UNKNOWN
  4. BENICAR [Concomitant]
     Dosage: UNKNOWN
  5. ALLEGRA [Concomitant]
     Dosage: UNKNOWN

REACTIONS (4)
  - Abdominal pain upper [Recovered/Resolved]
  - Nausea [Recovered/Resolved]
  - Diarrhoea [Recovered/Resolved]
  - Dyspepsia [Recovered/Resolved]
